FAERS Safety Report 8304349-1 (Version None)
Quarter: 2012Q2

REPORT INFORMATION
  Report Type: 
  Country: None (occurrence: None)
  Receive Date: 20120423
  Receipt Date: 20120416
  Transmission Date: 20120825
  Serious: Yes (Death)
  Sender: FDA-Public Use
  Company Number: PE-PFIZER INC-2012094983

PATIENT
  Age: 74 Year
  Sex: Female

DRUGS (1)
  1. ZYVOX [Suspect]
     Dosage: UNK
     Route: 042

REACTIONS (1)
  - DEATH [None]
